FAERS Safety Report 6673028-9 (Version None)
Quarter: 2010Q2

REPORT INFORMATION
  Report Type: 
  Country: None (occurrence: None)
  Receive Date: 20100408
  Receipt Date: 20100401
  Transmission Date: 20101027
  Serious: Yes (Hospitalization)
  Sender: FDA-Public Use
  Company Number: B0646054A

PATIENT

DRUGS (3)
  1. ESKAZOLE [Suspect]
     Indication: NEUROCYSTICERCOSIS
     Dosage: 400MG PER DAY
     Dates: start: 20100201, end: 20100330
  2. PRAZIQUANTEL [Concomitant]
  3. DEXAMETHASONE [Concomitant]
     Dosage: 24MG PER DAY

REACTIONS (2)
  - CLEFT PALATE [None]
  - DRUG EXPOSURE DURING PREGNANCY [None]
